FAERS Safety Report 16991059 (Version 2)
Quarter: 2020Q1

REPORT INFORMATION
  Report Type: Spontaneous
  Country: US (occurrence: US)
  Receive Date: 20191104
  Receipt Date: 20200110
  Transmission Date: 20200409
  Serious: Yes (Hospitalization)
  Sender: FDA-Public Use
  Company Number: US-ALKERMES INC.-ALK-2019-005749

PATIENT
  Age: 32 Year
  Sex: Male
  Weight: 62.59 kg

DRUGS (2)
  1. VIVITROL [Suspect]
     Active Substance: NALTREXONE
     Indication: ALCOHOLISM
     Dosage: 380 MG, QMO
     Route: 030
     Dates: start: 20191112
  2. VIVITROL [Suspect]
     Active Substance: NALTREXONE
     Dosage: 380 MG, QMO
     Route: 030

REACTIONS (9)
  - Aggression [Recovered/Resolved]
  - Road traffic accident [Recovered/Resolved]
  - Alcoholism [Not Recovered/Not Resolved]
  - Loss of consciousness [Recovered/Resolved]
  - Anger [Recovered/Resolved]
  - Pain [Recovered/Resolved]
  - Foot fracture [Recovered/Resolved]
  - Withdrawal syndrome [Recovered/Resolved]
  - Death of relative [Not Recovered/Not Resolved]

NARRATIVE: CASE EVENT DATE: 2018
